FAERS Safety Report 5124716-7 (Version None)
Quarter: 2006Q4

REPORT INFORMATION
  Report Type: 
  Country: None (occurrence: None)
  Receive Date: 20061006
  Receipt Date: 20060926
  Transmission Date: 20070319
  Serious: Yes (Hospitalization)
  Sender: FDA-Public Use
  Company Number: HQWYE200126SEP06

PATIENT
  Age: 82 Year
  Sex: Male

DRUGS (8)
  1. CORDARONE [Suspect]
     Indication: ARRHYTHMIA
     Dosage: 200 MG 1X PER 1 DAY ORAL
     Route: 048
     Dates: start: 20050309, end: 20050823
  2. CORDARONE [Suspect]
     Indication: ATRIAL FIBRILLATION
     Dosage: 200 MG 1X PER 1 DAY ORAL
     Route: 048
     Dates: start: 20050309, end: 20050823
  3. DIGOXIN [Concomitant]
  4. IRBESARTAN [Concomitant]
  5. PREVISCAN (FLUINDIONE) [Concomitant]
  6. STABLON (TIANEPTINE) [Concomitant]
  7. HYPERIUM (RILMENIDINE) [Concomitant]
  8. FORLAX (MACROGOL) [Concomitant]

REACTIONS (15)
  - BALANCE DISORDER [None]
  - BRADYCARDIA [None]
  - CARDIOACTIVE DRUG LEVEL INCREASED [None]
  - DEPRESSION [None]
  - ECCHYMOSIS [None]
  - ELECTROCARDIOGRAM PR PROLONGATION [None]
  - ELECTROCARDIOGRAM REPOLARISATION ABNORMALITY [None]
  - ELECTROCARDIOGRAM T WAVE INVERSION [None]
  - FALL [None]
  - HYPOTHYROIDISM [None]
  - NOCTURNAL DYSPNOEA [None]
  - NODAL RHYTHM [None]
  - OEDEMA PERIPHERAL [None]
  - PROTHROMBIN TIME PROLONGED [None]
  - URINARY INCONTINENCE [None]
